FAERS Safety Report 5416489-5 (Version None)
Quarter: 2007Q3

REPORT INFORMATION
  Report Type: 
  Country: None (occurrence: None)
  Receive Date: 20070816
  Receipt Date: 20070806
  Transmission Date: 20080115
  Serious: Yes (Other)
  Sender: FDA-Public Use
  Company Number: CN-NOVOPROD-265326

PATIENT
  Age: 52 Year
  Sex: Female
  Weight: 65 kg

DRUGS (3)
  1. NOVOLOG MIX 70/30 [Suspect]
     Indication: INSULIN-REQUIRING TYPE II DIABETES MELLITUS
     Dosage: 14+14
     Route: 058
     Dates: start: 20070601, end: 20070615
  2. NOVORAPID [Concomitant]
     Dosage: 28 IU, BID
     Dates: start: 20070601, end: 20070622
  3. METFORMIN HCL [Concomitant]
     Dosage: .25 UNK, TID
     Dates: start: 20070601

REACTIONS (1)
  - VISION BLURRED [None]
